FAERS Safety Report 14498467 (Version 2)
Quarter: 2018Q1

REPORT INFORMATION
  Report Type: Spontaneous
  Country: DE (occurrence: DE)
  Receive Date: 20180207
  Receipt Date: 20180322
  Transmission Date: 20180509
  Serious: Yes (Hospitalization, Other)
  Sender: FDA-Public Use
  Company Number: DE-ASTRAZENECA-2018SE13088

PATIENT
  Age: 59 Year
  Sex: Female

DRUGS (4)
  1. AMOXIBETA [Suspect]
     Active Substance: AMOXICILLIN
     Indication: PRODUCT USED FOR UNKNOWN INDICATION
     Route: 065
  2. CANDESARTAN. [Suspect]
     Active Substance: CANDESARTAN
     Indication: PRODUCT USED FOR UNKNOWN INDICATION
     Dosage: 8.0MG UNKNOWN
     Route: 048
     Dates: start: 20150101
  3. L-THYROXIN 75 [Concomitant]
     Active Substance: LEVOTHYROXINE
  4. CANDESARTAN. [Suspect]
     Active Substance: CANDESARTAN
     Indication: PRODUCT USED FOR UNKNOWN INDICATION
     Dosage: 4.0MG UNKNOWN
     Route: 048
     Dates: start: 20150101

REACTIONS (11)
  - Vision blurred [Unknown]
  - Intraocular pressure increased [Unknown]
  - Vitreous opacities [Unknown]
  - Cardiovascular disorder [Unknown]
  - Feeling hot [Unknown]
  - Chest discomfort [Unknown]
  - Eye disorder [Unknown]
  - Optic nerve injury [Unknown]
  - Anaphylactic shock [Unknown]
  - Lip swelling [Unknown]
  - Eye swelling [Unknown]

NARRATIVE: CASE EVENT DATE: 2016
